FAERS Safety Report 17422615 (Version 1)
Quarter: 2020Q1

REPORT INFORMATION
  Report Type: Spontaneous
  Country: US (occurrence: US)
  Receive Date: 20200215
  Receipt Date: 20200215
  Transmission Date: 20200409
  Serious: Yes (Other)
  Sender: FDA-Public Use
  Company Number: US-AUROBINDO-AUR-APL-2020-007114

PATIENT
  Age: 28 Year
  Sex: Female

DRUGS (4)
  1. INTEGRILIN [Suspect]
     Active Substance: EPTIFIBATIDE
     Indication: CORONARY ARTERY DISSECTION
     Dosage: UNK
     Route: 065
  2. ASPIRIN. [Suspect]
     Active Substance: ASPIRIN
     Indication: CORONARY ARTERY DISSECTION
     Dosage: UNK
     Route: 065
  3. METOPROLOL. [Suspect]
     Active Substance: METOPROLOL
     Indication: CORONARY ARTERY DISSECTION
     Dosage: UNK
     Route: 065
  4. HEPARIN [Suspect]
     Active Substance: HEPARIN SODIUM
     Indication: CORONARY ARTERY DISSECTION
     Dosage: UNK
     Route: 065

REACTIONS (4)
  - Premature delivery [Recovered/Resolved]
  - Caesarean section [Recovered/Resolved]
  - Exposure during pregnancy [Recovered/Resolved]
  - Uterine hypertonus [Recovered/Resolved]
